FAERS Safety Report 7621696-7 (Version None)
Quarter: 2011Q3

REPORT INFORMATION
  Report Type: 
  Country: None (occurrence: None)
  Receive Date: 20110719
  Receipt Date: 20110711
  Transmission Date: 20111222
  Serious: Yes (Life-Threatening, Hospitalization)
  Sender: FDA-Public Use
  Company Number: SE-MERCK-1107SWE00002

PATIENT
  Age: 60 Year
  Sex: Female

DRUGS (8)
  1. INVANZ [Suspect]
     Indication: SPONDYLITIS
     Route: 051
     Dates: start: 20100101, end: 20100312
  2. HYDROCHLOROTHIAZIDE [Concomitant]
     Route: 048
  3. METFORMIN [Concomitant]
     Route: 048
  4. INSULIN, ISOPHANE [Concomitant]
     Route: 051
  5. SIMVASTATIN [Concomitant]
     Route: 048
  6. ENALAPRIL MALEATE [Concomitant]
     Route: 048
  7. AMDINOCILLIN PIVOXIL HCL [Suspect]
     Indication: SPONDYLITIS
     Route: 048
     Dates: start: 20100312, end: 20100506
  8. CYANOCOBALAMIN [Concomitant]
     Route: 048

REACTIONS (1)
  - THROMBOTIC THROMBOCYTOPENIC PURPURA [None]
